FAERS Safety Report 16892786 (Version 2)
Quarter: 2020Q2

REPORT INFORMATION
  Report Type: Spontaneous
  Country: JP (occurrence: JP)
  Receive Date: 20191007
  Receipt Date: 20200406
  Transmission Date: 20200713
  Serious: Yes (Death, Life-Threatening, Hospitalization, Disabling, Other)
  Sender: FDA-Public Use
  Company Number: JP-009507513-1909JPN004599J

PATIENT
  Age: 86 Year
  Sex: Male
  Weight: 52 kg

DRUGS (1)
  1. KEYTRUDA [Suspect]
     Active Substance: PEMBROLIZUMAB
     Indication: COLON CANCER
     Dosage: 200 MILLIGRAM, Q3W
     Route: 041
     Dates: start: 20190802, end: 20191009

REACTIONS (3)
  - Enterocolitis [Unknown]
  - Malignant neoplasm progression [Unknown]
  - Intestinal perforation [Fatal]

NARRATIVE: CASE EVENT DATE: 2019
